FAERS Safety Report 6112379-3 (Version None)
Quarter: 2009Q1

REPORT INFORMATION
  Report Type: 
  Country: None (occurrence: None)
  Receive Date: 20090311
  Receipt Date: 20090311
  Transmission Date: 20090719
  Serious: Yes (Other)
  Sender: FDA-Public Use
  Company Number: None

PATIENT
  Age: 37 Year
  Sex: Female
  Weight: 68.0396 kg

DRUGS (2)
  1. PROVENTIL-HFA [Suspect]
     Indication: ASTHMA
     Dosage: 1 - 2 PUFFS AS NEEDED PO
     Route: 048
     Dates: start: 20090101, end: 20090310
  2. PROAIR HFA [Suspect]

REACTIONS (1)
  - DRUG INEFFECTIVE [None]
